FAERS Safety Report 6327153-2 (Version None)
Quarter: 2009Q3

REPORT INFORMATION
  Report Type: 
  Country: None (occurrence: None)
  Receive Date: 20090825
  Receipt Date: 20090819
  Transmission Date: 20100115
  Serious: Yes (Hospitalization)
  Sender: FDA-Public Use
  Company Number: B0573528A

PATIENT
  Sex: Male

DRUGS (8)
  1. LAMICTAL [Suspect]
     Indication: EPILEPSY
     Dosage: 50MG PER DAY
     Route: 048
     Dates: start: 20090409, end: 20090507
  2. ALEVIATIN [Suspect]
     Indication: EPILEPSY
     Route: 048
  3. CARBAMAZEPINE [Suspect]
     Indication: EPILEPSY
     Route: 048
     Dates: end: 20090508
  4. CEROCRAL [Suspect]
     Indication: EPILEPSY
     Route: 048
     Dates: end: 20090508
  5. DEPAKENE [Suspect]
     Indication: EPILEPSY
     Route: 048
  6. PROLMON [Suspect]
     Indication: EPILEPSY
     Route: 048
     Dates: end: 20090508
  7. DIAZEPAM [Suspect]
     Indication: EPILEPSY
     Route: 048
     Dates: end: 20090508
  8. GABAPENTIN [Suspect]
     Indication: EPILEPSY
     Route: 048
     Dates: start: 20090409, end: 20090508

REACTIONS (7)
  - EOSINOPHILIA [None]
  - ERYTHEMA [None]
  - HEPATIC FUNCTION ABNORMAL [None]
  - OROPHARYNGEAL PAIN [None]
  - PYREXIA [None]
  - RASH [None]
  - WHITE BLOOD CELL COUNT DECREASED [None]
